FAERS Safety Report 7113179-8 (Version None)
Quarter: 2010Q4

REPORT INFORMATION
  Report Type: 
  Country: None (occurrence: None)
  Receive Date: 20101119
  Receipt Date: 20091013
  Transmission Date: 20110411
  Serious: No
  Sender: FDA-Public Use
  Company Number: A0811609A

PATIENT
  Age: 50 Year
  Sex: Female

DRUGS (4)
  1. BUPROPION HYDROCHLORIDE [Suspect]
     Indication: PSORIASIS
     Route: 048
  2. WELLBUTRIN [Suspect]
     Indication: PSORIASIS
     Route: 048
  3. ZYBAN [Suspect]
     Route: 048
  4. BLOOD PRESSURE MEDICATION [Concomitant]

REACTIONS (1)
  - THERAPEUTIC RESPONSE UNEXPECTED [None]
